FAERS Safety Report 17868798 (Version 1)
Quarter: 2020Q2

REPORT INFORMATION
  Report Type: Spontaneous
  Country: US (occurrence: US)
  Receive Date: 20200607
  Receipt Date: 20200607
  Transmission Date: 20200714
  Serious: Yes (Other)
  Sender: FDA-Public Use
  Company Number: US-AMGEN-USASP2020088236

PATIENT
  Age: 62 Year
  Sex: Female

DRUGS (4)
  1. CARFILZOMIB [Suspect]
     Active Substance: CARFILZOMIB
     Indication: PLASMA CELL MYELOMA
     Dosage: 20 MILLIGRAM/SQ. METER, CYCLE 1 DAY1/2
     Route: 065
  2. REOLYSIN [Concomitant]
     Active Substance: PELAREOREP
     Indication: PRODUCT USED FOR UNKNOWN INDICATION
     Dosage: 4.5 X 10^10 TCID50
     Route: 065
  3. DEXAMETHASONE. [Concomitant]
     Active Substance: DEXAMETHASONE
     Indication: PLASMA CELL MYELOMA
     Dosage: 20 MILLIGRAM
  4. CARFILZOMIB [Suspect]
     Active Substance: CARFILZOMIB
     Dosage: 56 MILLIGRAM/SQ. METER, DAYS  8, 9, 15 AND 16 OF A 28-DAY
     Route: 065

REACTIONS (3)
  - Plasma cell myeloma refractory [Unknown]
  - Thrombocytopenia [Unknown]
  - Therapy partial responder [Unknown]
